FAERS Safety Report 17414510 (Version 1)
Quarter: 2020Q1

REPORT INFORMATION
  Report Type: Spontaneous
  Country: US (occurrence: US)
  Receive Date: 20200213
  Receipt Date: 20200213
  Transmission Date: 20200409
  Serious: No
  Sender: FDA-Public Use
  Company Number: US-TEVA-2020-US-1181096

PATIENT
  Sex: Female
  Weight: 111.23 kg

DRUGS (3)
  1. AUSTEDO [Suspect]
     Active Substance: DEUTETRABENAZINE
     Indication: ESSENTIAL TREMOR
  2. AUSTEDO [Suspect]
     Active Substance: DEUTETRABENAZINE
     Indication: EXTRAPYRAMIDAL DISORDER
     Dates: start: 201909
  3. AUSTEDO [Suspect]
     Active Substance: DEUTETRABENAZINE
     Indication: MOVEMENT DISORDER
     Route: 048

REACTIONS (2)
  - Product use in unapproved indication [Unknown]
  - Bronchitis [Unknown]
